FAERS Safety Report 22109976 (Version 2)
Quarter: 2023Q2

REPORT INFORMATION
  Report Type: Spontaneous
  Country: US (occurrence: US)
  Receive Date: 20230317
  Receipt Date: 20230404
  Transmission Date: 20230722
  Serious: Yes (Hospitalization, Disabling, Other)
  Sender: FDA-Public Use
  Company Number: US-PFIZER INC-PV202300049922

PATIENT
  Age: 53 Year
  Sex: Female

DRUGS (1)
  1. PRISTIQ EXTENDED-RELEASE [Suspect]
     Active Substance: DESVENLAFAXINE SUCCINATE
     Dosage: ONCE AT NIGHT

REACTIONS (6)
  - Coronary artery thrombosis [Unknown]
  - Atrial fibrillation [Unknown]
  - Cardiac failure [Unknown]
  - Malaise [Unknown]
  - Stress [Unknown]
  - Anxiety [Unknown]
